FAERS Safety Report 5794124-4 (Version None)
Quarter: 2008Q2

REPORT INFORMATION
  Report Type: 
  Country: None (occurrence: None)
  Receive Date: 20080625
  Receipt Date: 20080610
  Transmission Date: 20081010
  Serious: Yes (Other)
  Sender: FDA-Public Use
  Company Number: STI-2008-00054

PATIENT
  Age: 55 Year
  Sex: Female

DRUGS (1)
  1. HYDROCORTISONE [Suspect]
     Indication: ADRENAL DISORDER
     Dosage: 30 MG, 20MG IN MORNING AND 10MG IN EVENING, ORAL
     Route: 048
     Dates: start: 20071128, end: 20080101

REACTIONS (2)
  - DYSGEUSIA [None]
  - THYROID CANCER [None]
